FAERS Safety Report 12286786 (Version 1)
Quarter: 2016Q2

REPORT INFORMATION
  Report Type: Spontaneous
  Country: None (occurrence: None)
  Receive Date: 20160419
  Receipt Date: 20160419
  Transmission Date: 20160815
  Serious: No
  Sender: FDA-Public Use
  Company Number: None

PATIENT
  Age: 40 Year
  Sex: Male

DRUGS (1)
  1. GLEEVEC [Suspect]
     Active Substance: IMATINIB MESYLATE

REACTIONS (4)
  - Pain in extremity [None]
  - Peripheral swelling [None]
  - Joint swelling [None]
  - Arthralgia [None]

NARRATIVE: CASE EVENT DATE: 20160418
